FAERS Safety Report 6877668-3 (Version None)
Quarter: 2010Q3

REPORT INFORMATION
  Report Type: 
  Country: None (occurrence: None)
  Receive Date: 20100727
  Receipt Date: 20100513
  Transmission Date: 20110219
  Serious: No
  Sender: FDA-Public Use
  Company Number: US-ABBOTT-10P-163-0645274-00

PATIENT
  Sex: Female

DRUGS (4)
  1. SYNTHROID [Suspect]
     Indication: PRODUCT USED FOR UNKNOWN INDICATION
     Dates: start: 19680101, end: 20090101
  2. SYNTHROID [Suspect]
     Dates: start: 20090101, end: 20100411
  3. SYNTHROID [Suspect]
     Dates: start: 20100411
  4. XANAX [Concomitant]
     Indication: PRODUCT USED FOR UNKNOWN INDICATION

REACTIONS (8)
  - BLOOD THYROID STIMULATING HORMONE DECREASED [None]
  - HYPERHIDROSIS [None]
  - INSOMNIA [None]
  - JOINT CREPITATION [None]
  - MIGRAINE [None]
  - MUSCULAR WEAKNESS [None]
  - PALPITATIONS [None]
  - WEIGHT INCREASED [None]
